FAERS Safety Report 9721035 (Version 1)
Quarter: 2013Q4

REPORT INFORMATION
  Report Type: Spontaneous
  Country: RO (occurrence: RO)
  Receive Date: 20131129
  Receipt Date: 20131129
  Transmission Date: 20140711
  Serious: Yes (Death)
  Sender: FDA-Public Use
  Company Number: PHHY2013RO136982

PATIENT
  Age: 52 Year
  Sex: Male
  Weight: 120 kg

DRUGS (8)
  1. AMLODIPINE [Suspect]
     Indication: HYPERTENSION
     Dosage: 5 MG, QD
     Route: 048
  2. BISOPROLOL [Suspect]
     Indication: HYPERTENSION
     Dosage: 5 MG, QD
     Route: 048
  3. BISOPROLOL [Suspect]
     Indication: VENTRICULAR ARRHYTHMIA
  4. PERINDOPRIL [Suspect]
     Indication: HYPERTENSION
     Dosage: 5 MG, QD
     Route: 048
  5. ACETYLSALICYLIC ACID [Suspect]
     Indication: HYPERTENSION
     Dosage: 100 MG, QD
     Route: 048
  6. ACETYLSALICYLIC ACID [Suspect]
     Indication: VENTRICULAR ARRHYTHMIA
  7. ATORVASTATIN [Suspect]
     Indication: HYPERCHOLESTEROLAEMIA
     Dosage: 10 MG, QD
     Route: 048
  8. ATORVASTATIN [Suspect]
     Indication: DYSLIPIDAEMIA

REACTIONS (1)
  - Sudden cardiac death [Fatal]
